FAERS Safety Report 7309269-7 (Version None)
Quarter: 2011Q1

REPORT INFORMATION
  Report Type: 
  Country: None (occurrence: None)
  Receive Date: 20110223
  Receipt Date: 20110214
  Transmission Date: 20110831
  Serious: Yes (Hospitalization, Other)
  Sender: FDA-Public Use
  Company Number: JP-PFIZER INC-2010164727

PATIENT
  Age: 50 Year
  Sex: Female
  Weight: 51.3 kg

DRUGS (13)
  1. BIOFERMIN [Concomitant]
     Dosage: UNK
     Route: 048
     Dates: start: 20100703
  2. TAKEPRON [Concomitant]
     Dosage: UNK
  3. LIPITOR [Suspect]
     Indication: HYPERLIPIDAEMIA
     Dosage: 10 MG, 1X/DAY
     Route: 048
     Dates: start: 20101026, end: 20101102
  4. TORASEMIDE [Concomitant]
     Dosage: UNK
     Route: 048
  5. FERROUS CITRATE [Concomitant]
     Dosage: UNK
     Route: 048
  6. TACROLIMUS [Suspect]
     Indication: RENAL TRANSPLANT
     Dosage: 7 MG, 1X/DAY
     Route: 048
     Dates: start: 20091110
  7. MEDROL [Concomitant]
     Dosage: UNK
     Route: 048
  8. NELBON [Concomitant]
     Dosage: UNK
     Route: 048
  9. TACROLIMUS [Suspect]
     Indication: RENAL FAILURE CHRONIC
  10. ATELEC [Concomitant]
     Dosage: UNK
  11. CALONAL [Concomitant]
     Dosage: UNK
     Route: 048
  12. CELLCEPT [Concomitant]
     Dosage: UNK
  13. ALFAROL [Concomitant]
     Dosage: UNK
     Route: 048

REACTIONS (4)
  - MALAISE [None]
  - PANCYTOPENIA [None]
  - GASTROENTERITIS [None]
  - BONE MARROW FAILURE [None]
